FAERS Safety Report 13721819 (Version 1)
Quarter: 2017Q3

REPORT INFORMATION
  Report Type: Spontaneous
  Country: US (occurrence: US)
  Receive Date: 20170706
  Receipt Date: 20170706
  Transmission Date: 20171127
  Serious: Yes (Hospitalization, Other)
  Sender: FDA-Public Use
  Company Number: US-JAZZ-2017-US-008744

PATIENT
  Age: 55 Year
  Sex: Male

DRUGS (5)
  1. XYREM [Suspect]
     Active Substance: SODIUM OXYBATE
     Indication: NARCOLEPSY
     Dosage: 2.25G, BID
     Route: 048
     Dates: start: 200908, end: 200909
  2. XYREM [Suspect]
     Active Substance: SODIUM OXYBATE
     Dosage: DOSE ADJUSTMENT
     Route: 048
     Dates: start: 200909, end: 201107
  3. XYREM [Suspect]
     Active Substance: SODIUM OXYBATE
     Dosage: 3.75G, QD FIRST DOSE
     Route: 048
     Dates: start: 201107
  4. XYREM [Suspect]
     Active Substance: SODIUM OXYBATE
     Dosage: 3G, QD SECOND DOSE
     Route: 048
     Dates: start: 201107
  5. CLARITIN [Concomitant]
     Active Substance: LORATADINE
     Indication: PRODUCT USED FOR UNKNOWN INDICATION

REACTIONS (1)
  - Hospitalisation [Unknown]

NARRATIVE: CASE EVENT DATE: 20170629
